FAERS Safety Report 23577803 (Version 1)
Quarter: 2024Q1

REPORT INFORMATION
  Report Type: Spontaneous
  Country: JP (occurrence: JP)
  Receive Date: 20240228
  Receipt Date: 20240228
  Transmission Date: 20240410
  Serious: Yes (Other)
  Sender: FDA-Public Use
  Company Number: JP-002147023-NVSJ2023JP010521

PATIENT
  Sex: Female

DRUGS (3)
  1. BLEOMYCIN HYDROCHLORIDE [Suspect]
     Active Substance: BLEOMYCIN HYDROCHLORIDE
     Indication: Product used for unknown indication
     Dosage: UNK
     Route: 065
  2. CARBOPLATIN [Suspect]
     Active Substance: CARBOPLATIN
     Indication: Product used for unknown indication
     Dosage: UNK
     Route: 065
  3. ETOPOSIDE [Suspect]
     Active Substance: ETOPOSIDE
     Indication: Product used for unknown indication
     Dosage: UNK
     Route: 065

REACTIONS (9)
  - Myelosuppression [Recovering/Resolving]
  - Multiple organ dysfunction syndrome [Unknown]
  - Altered state of consciousness [Unknown]
  - Liver disorder [Unknown]
  - Renal disorder [Unknown]
  - Acute hepatic failure [Unknown]
  - Respiratory disorder [Recovering/Resolving]
  - Coagulopathy [Unknown]
  - Pleural effusion [Unknown]
